FAERS Safety Report 8876835 (Version 1)
Quarter: 2012Q4

REPORT INFORMATION
  Report Type: Spontaneous
  Country: US (occurrence: None)
  Receive Date: 20121024
  Receipt Date: 20121024
  Transmission Date: 20130627
  Serious: Yes (Other)
  Sender: FDA-Public Use
  Company Number: 20120635

PATIENT

DRUGS (1)
  1. VENOFER [Suspect]
     Indication: DRUG USE FOR UNKNOWN INDICATION
     Route: 042

REACTIONS (4)
  - Infusion site extravasation [None]
  - Infusion site necrosis [None]
  - Arm amputation [None]
  - Device dislocation [None]
